FAERS Safety Report 12961839 (Version 7)
Quarter: 2019Q2

REPORT INFORMATION
  Report Type: Spontaneous
  Country: US (occurrence: US)
  Receive Date: 20161121
  Receipt Date: 20190402
  Transmission Date: 20190711
  Serious: Yes (Hospitalization, Other)
  Sender: FDA-Public Use
  Company Number: US-PFIZER INC-2016537889

PATIENT
  Age: 85 Year
  Sex: Female
  Weight: 44.45 kg

DRUGS (7)
  1. ALPHAGAN P [Suspect]
     Active Substance: BRIMONIDINE TARTRATE
     Dosage: 4 GTT, DAILY (2 DROPS AT NOON, 1 DROP IN EVENING, 1 DROP BEFORE GOING TO BED)
  2. PHOSPHOLINE IODIDE [Suspect]
     Active Substance: ECHOTHIOPHATE IODIDE
     Indication: GLAUCOMA
  3. DORZOLAMIDE W/TIMOLOL [Suspect]
     Active Substance: DORZOLAMIDE HYDROCHLORIDE\TIMOLOL MALEATE
     Indication: GLAUCOMA
     Dosage: UNK, 2X/DAY (MORNING AND EVENING)
     Dates: start: 2012
  4. PHOSPHOLINE IODIDE [Suspect]
     Active Substance: ECHOTHIOPHATE IODIDE
     Indication: INTRAOCULAR PRESSURE INCREASED
     Dosage: UNK, 2X/DAY (TWICE A DAY LEFT EYE, MORNING + EVENING)
     Route: 047
  5. LUMIGAN [Suspect]
     Active Substance: BIMATOPROST
     Dosage: UNK
  6. ALPHAGAN P [Suspect]
     Active Substance: BRIMONIDINE TARTRATE
     Indication: GLAUCOMA
     Dosage: UNK UNK, 3X/DAY (MORNING, NOON AND NIGHT)
     Dates: start: 1999
  7. LUMIGAN [Suspect]
     Active Substance: BIMATOPROST
     Indication: GLAUCOMA
     Dosage: UNK UNK, 1X/DAY (ONCE DAILY AT BED TIME)

REACTIONS (3)
  - Product dose omission [Unknown]
  - Cataract [Unknown]
  - Product complaint [Unknown]
